FAERS Safety Report 9677768 (Version 1)
Quarter: 2013Q4

REPORT INFORMATION
  Report Type: Spontaneous
  Country: GB (occurrence: GB)
  Receive Date: 20131108
  Receipt Date: 20131108
  Transmission Date: 20140711
  Serious: Yes (Death)
  Sender: FDA-Public Use
  Company Number: GB-JNJFOC-20131019749

PATIENT
  Age: 40 Year
  Sex: Male

DRUGS (2)
  1. RISPERIDONE [Suspect]
     Indication: SCHIZOPHRENIA, PARANOID TYPE
     Route: 065
  2. PAROXETINE [Suspect]
     Indication: ANTIDEPRESSANT THERAPY
     Route: 065

REACTIONS (1)
  - Toxicity to various agents [Fatal]
